FAERS Safety Report 4274406-8 (Version None)
Quarter: 2004Q1

REPORT INFORMATION
  Report Type: 
  Country: None (occurrence: None)
  Receive Date: 20040120
  Receipt Date: 20040109
  Transmission Date: 20041129
  Serious: Yes (Hospitalization)
  Sender: FDA-Public Use
  Company Number: WAES 0401DNK00006

PATIENT
  Age: 63 Year
  Sex: Male
  Weight: 75 kg

DRUGS (18)
  1. ACETAMINOPHEN [Concomitant]
  2. AMLODIPINE BESYLATE [Concomitant]
  3. ASPIRIN [Concomitant]
  4. CITALOPRAM HYDROBROMIDE [Concomitant]
  5. DEXTROMETHORPHAN [Concomitant]
  6. ESOMEPRAZOLE MAGNESIUM [Concomitant]
  7. FUROSEMIDE [Concomitant]
  8. GLIMEPIRIDE [Concomitant]
  9. HEPARINOID [Concomitant]
  10. METOCLOPRAMIDE HYDROCHLORIDE [Concomitant]
  11. METOPROLOL TARTRATE [Concomitant]
  12. MIANSERIN HYDROCHLORIDE [Concomitant]
  13. POTASSIUM CHLORIDE [Concomitant]
  14. RAMIPRIL [Concomitant]
  15. VIOXX [Suspect]
     Indication: GOUT
     Route: 048
     Dates: start: 20030123, end: 20031205
  16. ZOCOR [Concomitant]
  17. TOLBUTAMIDE [Concomitant]
  18. ZOPICLONE [Concomitant]

REACTIONS (1)
  - CEREBRAL INFARCTION [None]
